FAERS Safety Report 5728330-1 (Version None)
Quarter: 2008Q2

REPORT INFORMATION
  Report Type: 
  Country: None (occurrence: None)
  Receive Date: 20080506
  Receipt Date: 20080429
  Transmission Date: 20081010
  Serious: Yes (Other)
  Sender: FDA-Public Use
  Company Number: PHHY2008BR06889

PATIENT
  Sex: Female
  Weight: 59 kg

DRUGS (6)
  1. AMLODIPINE BESYLATE [Concomitant]
     Indication: HYPERTENSION
     Dosage: 10 MG, QD
     Route: 048
     Dates: start: 20000101
  2. GLUCOVANCE [Concomitant]
     Indication: DIABETES MELLITUS
     Dosage: 1 DF, QID
     Route: 048
     Dates: start: 20060401
  3. CALCIUM [Concomitant]
     Indication: RESORPTION BONE INCREASED
     Dosage: UNK, QID
     Route: 048
     Dates: start: 20060401
  4. LOSARTAN POTASSIUM [Concomitant]
     Indication: HYPERTENSION
     Dosage: 50 MG, QD
     Route: 048
     Dates: start: 20061001
  5. SIMVASTATIN [Concomitant]
     Indication: BLOOD CHOLESTEROL
     Dosage: 20 MG, QD
     Route: 048
     Dates: start: 19980101
  6. ZADITEN [Suspect]
     Indication: HYPERSENSITIVITY
     Dosage: UNK, ONCE/SINGLE
     Route: 048
     Dates: start: 20060101

REACTIONS (4)
  - GLAUCOMA [None]
  - INTRAOCULAR PRESSURE INCREASED [None]
  - SURGERY [None]
  - VISUAL DISTURBANCE [None]
